FAERS Safety Report 26199189 (Version 1)
Quarter: 2025Q4

REPORT INFORMATION
  Report Type: Spontaneous
  Country: JP (occurrence: JP)
  Receive Date: 20251225
  Receipt Date: 20251225
  Transmission Date: 20260118
  Serious: Yes (Hospitalization)
  Sender: ABBVIE
  Company Number: JP-ABBVIE-6606834

PATIENT
  Sex: Female

DRUGS (2)
  1. ASENAPINE MALEATE [Suspect]
     Active Substance: ASENAPINE MALEATE
     Indication: Product used for unknown indication
     Dosage: SYCREST SUBLINGUAL TABLETS
     Route: 060
  2. PALIPERIDONE [Concomitant]
     Active Substance: PALIPERIDONE
     Indication: Product used for unknown indication

REACTIONS (2)
  - Confusional state [Unknown]
  - Hallucination, auditory [Unknown]
